FAERS Safety Report 13891085 (Version 2)
Quarter: 2017Q3

REPORT INFORMATION
  Report Type: Spontaneous
  Country: CN (occurrence: CN)
  Receive Date: 20170822
  Receipt Date: 20170829
  Transmission Date: 20171127
  Serious: No
  Sender: FDA-Public Use
  Company Number: CN-009507513-1510CHN006671

PATIENT
  Age: 60 Year
  Sex: Male
  Weight: 51 kg

DRUGS (35)
  1. DOMPERIDONE [Concomitant]
     Active Substance: DOMPERIDONE
     Indication: PROPHYLAXIS
     Dosage: 10 MG, QD
     Route: 048
     Dates: start: 20150722, end: 20150722
  2. POTASSIUM CHLORIDE. [Concomitant]
     Active Substance: POTASSIUM CHLORIDE
     Indication: SUPPLEMENTATION THERAPY
     Dosage: 10 ML/CC, QD
     Route: 041
     Dates: start: 20150723, end: 20150727
  3. PALONOSETRON HYDROCHLORIDE. [Concomitant]
     Active Substance: PALONOSETRON HYDROCHLORIDE
     Indication: PROPHYLAXIS OF NAUSEA AND VOMITING
     Dosage: 0.25 MG, ONCE
     Route: 042
     Dates: start: 20150724, end: 20150724
  4. LANSOPRAZOLE. [Concomitant]
     Active Substance: LANSOPRAZOLE
     Indication: PROPHYLAXIS
     Dosage: 30 MG, QD
     Route: 041
     Dates: start: 20150724, end: 20150727
  5. EMEND [Suspect]
     Active Substance: APREPITANT
     Dosage: 80 MG, ONCE, DAY 2
     Route: 048
     Dates: start: 20150725, end: 20150725
  6. ORNIDAZOLE [Concomitant]
     Active Substance: ORNIDAZOLE
     Indication: LUNG INFECTION
     Dosage: 0.5 G, BID
     Route: 041
     Dates: start: 20150721, end: 20150727
  7. ACETAMINOPHEN (+) DIHYDROCODEINE BITARTRATE [Concomitant]
     Active Substance: ACETAMINOPHEN\DIHYDROCODEINE BITARTRATE
     Indication: ANALGESIC THERAPY
     Dosage: TOTAL DAILY DOSE: 1 G, TID
     Route: 048
     Dates: start: 20150723, end: 20150727
  8. ASCORBIC ACID. [Concomitant]
     Active Substance: ASCORBIC ACID
     Indication: VITAMIN SUPPLEMENTATION
     Dosage: TOTAL DAILY DOSE: 2 G, QD
     Route: 041
     Dates: start: 20150723, end: 20150727
  9. FUROSEMIDE. [Concomitant]
     Active Substance: FUROSEMIDE
     Indication: DIURETIC THERAPY
     Dosage: 20 MG, QD
     Route: 041
     Dates: start: 20150723, end: 20150725
  10. PEMETREXED DISODIUM [Concomitant]
     Active Substance: PEMETREXED DISODIUM
     Indication: CHEMOTHERAPY
     Dosage: TREATMENT CYCLE 1, 0.8 G, CYCLICAL, PEMETREXED DISODIUM+DDP REGIMEN
     Route: 041
     Dates: start: 20150724, end: 20150724
  11. CEFUROXIME SODIUM. [Concomitant]
     Active Substance: CEFUROXIME SODIUM
     Indication: LUNG INFECTION
     Dosage: 1.5 G, BID
     Route: 041
     Dates: start: 20150721, end: 20150721
  12. METOCLOPRAMIDE. [Concomitant]
     Active Substance: METOCLOPRAMIDE
     Dosage: 10 MG, DAILY
     Route: 048
     Dates: start: 20150722, end: 20150722
  13. DOMPERIDONE [Concomitant]
     Active Substance: DOMPERIDONE
     Dosage: 10 MG, TID
     Route: 048
     Dates: start: 20150723, end: 20150727
  14. CALCIUM CHLORIDE (+) DEXTROSE (+) MAGNESIUM SULFATE (+) POTASSIUM CHLO [Concomitant]
     Indication: SUPPLEMENTATION THERAPY
     Dosage: 1000 ML/CC, QD
     Route: 041
     Dates: start: 20150723, end: 20150727
  15. METOCLOPRAMIDE. [Concomitant]
     Active Substance: METOCLOPRAMIDE
     Indication: ABDOMINAL DISTENSION
     Dosage: TOTAL DAILY DOSE: 30 MG, BID
     Route: 048
     Dates: start: 20150721, end: 20150721
  16. LENTINAN [Concomitant]
     Active Substance: LENTINAN
     Indication: IMMUNISATION
     Dosage: 1 MG, QD
     Route: 041
     Dates: start: 20150721, end: 20150727
  17. INSULIN [Concomitant]
     Active Substance: INSULIN NOS
     Indication: IMMUNISATION
     Dosage: 6 IU, QD
     Route: 041
     Dates: start: 20150721, end: 20150727
  18. AMINOPHYLLINE. [Concomitant]
     Active Substance: AMINOPHYLLINE
     Indication: ASTHMA PROPHYLAXIS
     Dosage: 0.1 G, TID
     Route: 048
     Dates: start: 20150721, end: 20150727
  19. DEXAMETHASONE SODIUM PHOSPHATE. [Concomitant]
     Active Substance: DEXAMETHASONE SODIUM PHOSPHATE
     Indication: PROPHYLAXIS OF NAUSEA AND VOMITING
     Dosage: 12 MG, ONCE
     Route: 041
     Dates: start: 20150724, end: 20150724
  20. METOCLOPRAMIDE. [Concomitant]
     Active Substance: METOCLOPRAMIDE
     Dosage: TOTAL DAILY DOSE: 30 MG, TID
     Route: 048
     Dates: start: 20150723, end: 20150723
  21. CODEINE PHOSPHATE (+) PLATYCODON [Concomitant]
     Indication: COUGH
     Dosage: TOTAL DAILY DOSE: 72 MG, TID
     Route: 048
     Dates: start: 20150723, end: 20150727
  22. AMINO ACIDS (UNSPECIFIED) [Concomitant]
     Active Substance: AMINO ACIDS
     Indication: NUTRITIONAL SUPPLEMENTATION
     Dosage: 250 ML, QD
     Route: 041
     Dates: start: 20150721, end: 20150727
  23. SODIUM BICARBONATE. [Concomitant]
     Active Substance: SODIUM BICARBONATE
     Indication: URINE ALKALINISATION THERAPY
     Dosage: 125 ML/CC, QD
     Route: 041
     Dates: start: 20150724, end: 20150727
  24. EMEND [Suspect]
     Active Substance: APREPITANT
     Indication: PROPHYLAXIS OF NAUSEA AND VOMITING
     Dosage: 125 MG, ONCE, DAY 1
     Route: 048
     Dates: start: 20150724, end: 20150724
  25. FOLIC ACID. [Concomitant]
     Active Substance: FOLIC ACID
     Indication: VITAMIN SUPPLEMENTATION
     Dosage: 5 MG, QD
     Route: 048
     Dates: start: 20150723, end: 20150727
  26. EMEND [Suspect]
     Active Substance: APREPITANT
     Dosage: 80 MG, ONCE, DAY 3
     Route: 048
     Dates: start: 20150726, end: 20150726
  27. CYANOCOBALAMIN. [Concomitant]
     Active Substance: CYANOCOBALAMIN
     Indication: NUTRITIONAL SUPPLEMENTATION
     Dosage: 1 MG, QD, IVGTT
     Route: 041
     Dates: start: 20150721, end: 20150721
  28. VITAMINS (UNSPECIFIED) [Concomitant]
     Active Substance: VITAMINS
     Indication: NUTRITIONAL SUPPLEMENTATION
     Dosage: 2 BOTTLES, QD
     Route: 041
     Dates: start: 20150721, end: 20150727
  29. ORNITHINE ASPARTATE [Concomitant]
     Active Substance: ORNITHINE ASPARTATE
     Indication: PROPHYLAXIS
     Dosage: 5 G, QD
     Route: 041
     Dates: start: 20150721, end: 20150727
  30. LAFUTIDINE [Concomitant]
     Active Substance: LAFUTIDINE
     Indication: PROPHYLAXIS
     Dosage: 10 MG, BID
     Route: 048
     Dates: start: 20150721, end: 20150727
  31. NICERGOLINE [Concomitant]
     Active Substance: NICERGOLINE
     Indication: THROMBOSIS PROPHYLAXIS
     Dosage: TOTAL DAILY DOSE: 60 MG, TID
     Route: 048
     Dates: start: 20150723, end: 20150727
  32. CISPLATIN. [Concomitant]
     Active Substance: CISPLATIN
     Indication: CHEMOTHERAPY
     Dosage: TREATMENT CYCLE 1, 120 MG, CYCLICAL, PEMETREXED DISODIUM+DDP REGIMEN
     Route: 041
     Dates: start: 20150724, end: 20150724
  33. INSULIN [Concomitant]
     Active Substance: INSULIN NOS
     Indication: PROPHYLAXIS
  34. ALBUMIN HUMAN [Concomitant]
     Active Substance: ALBUMIN HUMAN
     Indication: SUPPLEMENTATION THERAPY
     Dosage: 50 ML/CC, QD
     Route: 041
     Dates: start: 20150722, end: 20150722
  35. FUROSEMIDE. [Concomitant]
     Active Substance: FUROSEMIDE
     Dosage: 20 MG, ONCE
     Route: 042
     Dates: start: 20150725, end: 20150725

REACTIONS (2)
  - Hiccups [Recovered/Resolved]
  - Hiccups [Recovered/Resolved]

NARRATIVE: CASE EVENT DATE: 20150724
